FAERS Safety Report 9149628 (Version 2)
Quarter: 2013Q2

REPORT INFORMATION
  Report Type: Spontaneous
  Country: NL (occurrence: NL)
  Receive Date: 20130308
  Receipt Date: 20130415
  Transmission Date: 20140414
  Serious: Yes (Hospitalization)
  Sender: FDA-Public Use
  Company Number: PHHY2013NL021471

PATIENT
  Age: 81 Year
  Sex: Female

DRUGS (1)
  1. NITROFURANTOIN [Suspect]
     Indication: URINARY TRACT INFECTION
     Dosage: 100 MG, 2 DOSES TOTAL

REACTIONS (11)
  - Strangury [Recovered/Resolved]
  - Dyspnoea [Recovered/Resolved]
  - Pyrexia [Recovered/Resolved]
  - Malaise [Recovered/Resolved]
  - Painful respiration [Recovered/Resolved]
  - Pulmonary toxicity [Recovered/Resolved]
  - Lung disorder [Recovered/Resolved]
  - Rales [Recovered/Resolved]
  - Sinus tachycardia [Recovered/Resolved]
  - Leukocytosis [Recovered/Resolved]
  - Eosinophilia [Recovered/Resolved]
